FAERS Safety Report 5931526-7 (Version None)
Quarter: 2008Q4

REPORT INFORMATION
  Report Type: 
  Country: None (occurrence: None)
  Receive Date: 20081027
  Receipt Date: 20081023
  Transmission Date: 20090506
  Serious: Yes (Other)
  Sender: FDA-Public Use
  Company Number: A0753715A

PATIENT
  Age: 26 Year
  Sex: Female
  Weight: 85 kg

DRUGS (6)
  1. AEROLIN [Suspect]
     Indication: DRUG USE FOR UNKNOWN INDICATION
     Dates: start: 20080910, end: 20080913
  2. AEROLIN [Suspect]
     Indication: UTERINE CONTRACTIONS DURING PREGNANCY
     Dosage: 2MG FOUR TIMES PER DAY
     Dates: start: 20080913
  3. BUSCOPAN [Suspect]
     Indication: DRUG USE FOR UNKNOWN INDICATION
     Dates: start: 20080910, end: 20080913
  4. NATELE [Concomitant]
     Indication: DRUG USE FOR UNKNOWN INDICATION
     Dates: start: 20081007
  5. BUSCOPAN [Concomitant]
     Dates: start: 20080913, end: 20080930
  6. ISOXSUPRINE [Concomitant]
     Indication: DRUG USE FOR UNKNOWN INDICATION
     Dosage: 2TAB PER DAY

REACTIONS (4)
  - DRUG EXPOSURE DURING PREGNANCY [None]
  - DRUG INTERACTION [None]
  - PALPITATIONS [None]
  - UTERINE CONTRACTIONS DURING PREGNANCY [None]
